FAERS Safety Report 4760271-9 (Version None)
Quarter: 2005Q3

REPORT INFORMATION
  Report Type: 
  Country: None (occurrence: None)
  Receive Date: 20050902
  Receipt Date: 20050502
  Transmission Date: 20060218
  Serious: Yes (Hospitalization, Disabling, Congenital Anomaly)
  Sender: FDA-Public Use
  Company Number: US-ROCHE-403948

PATIENT
  Sex: Female
  Weight: 2.5 kg

DRUGS (3)
  1. ACCUTANE [Suspect]
     Dates: start: 19960530, end: 19960703
  2. ACCUTANE [Suspect]
     Dates: start: 19960703, end: 19961215
  3. PREDNISONE TAB [Concomitant]
     Dosage: REPORTED AS 10 AND 20 PER DAY
     Dates: start: 19960903

REACTIONS (77)
  - ABDOMINAL PAIN [None]
  - ANOMALY OF EXTERNAL EAR CONGENITAL [None]
  - BLINDNESS [None]
  - BODY DYSMORPHIC DISORDER [None]
  - BRONCHITIS [None]
  - CEREBRAL PALSY [None]
  - CERUMEN IMPACTION [None]
  - CHOKING [None]
  - CONGENITAL CENTRAL NERVOUS SYSTEM ANOMALY [None]
  - CONGENITAL EYE DISORDER [None]
  - CONGENITAL HYDROCEPHALUS [None]
  - CONGENITAL MUSCULOSKELETAL ANOMALY [None]
  - CONGENITAL OPTIC NERVE ANOMALY [None]
  - CONVULSION [None]
  - COUGH [None]
  - CROUP INFECTIOUS [None]
  - DELAYED FONTANELLE CLOSURE [None]
  - DERMATITIS DIAPER [None]
  - DEVELOPMENTAL DELAY [None]
  - DIARRHOEA [None]
  - DRUG EXPOSURE DURING PREGNANCY [None]
  - DYSPLASIA [None]
  - DYSPNOEA [None]
  - EAR CANAL STENOSIS [None]
  - EAR DISORDER [None]
  - EAR MALFORMATION [None]
  - EYELID PTOSIS [None]
  - EYELID PTOSIS CONGENITAL [None]
  - FAILURE TO THRIVE [None]
  - FEEDING DISORDER [None]
  - FEEDING DISORDER NEONATAL [None]
  - FLATULENCE [None]
  - FOETAL DISORDER [None]
  - FONTANELLE BULGING [None]
  - HAEMANGIOMA [None]
  - HEART DISEASE CONGENITAL [None]
  - HYPERACUSIS [None]
  - HYPERREFLEXIA [None]
  - HYPOTONIA [None]
  - ILL-DEFINED DISORDER [None]
  - INJURY [None]
  - IRRITABILITY [None]
  - JAUNDICE [None]
  - LETHARGY [None]
  - MASTOIDITIS [None]
  - MENTAL RETARDATION SEVERITY UNSPECIFIED [None]
  - MICROCEPHALY [None]
  - MIDDLE EAR EFFUSION [None]
  - MUSCLE SPASTICITY [None]
  - NEONATAL DISORDER [None]
  - NERVOUS SYSTEM DISORDER [None]
  - OEDEMA PERIPHERAL [None]
  - OPTIC ATROPHY [None]
  - OTITIS MEDIA [None]
  - PARAESTHESIA [None]
  - PARALYSIS [None]
  - PERIVENTRICULAR LEUKOMALACIA [None]
  - PREMATURE LABOUR [None]
  - PYREXIA [None]
  - RASH [None]
  - REFLEXES ABNORMAL [None]
  - SCREAMING [None]
  - SHOCK [None]
  - SPUTUM DISCOLOURED [None]
  - STRABISMUS CONGENITAL [None]
  - SYNDACTYLY [None]
  - TEMPERATURE REGULATION DISORDER [None]
  - UPPER RESPIRATORY TRACT INFECTION [None]
  - URINE OUTPUT DECREASED [None]
  - URTICARIA [None]
  - VIRAL INFECTION [None]
  - VIRAL UPPER RESPIRATORY TRACT INFECTION [None]
  - VISUAL ACUITY REDUCED [None]
  - VISUAL DISTURBANCE [None]
  - VOMITING [None]
  - WEIGHT DECREASED [None]
  - WEIGHT GAIN POOR [None]
